FAERS Safety Report 16095806 (Version 1)
Quarter: 2019Q1

REPORT INFORMATION
  Report Type: Report from Study
  Country: US (occurrence: US)
  Receive Date: 20190320
  Receipt Date: 20190320
  Transmission Date: 20190418
  Serious: Yes (Other)
  Sender: FDA-Public Use
  Company Number: US-SA-2019SA074798

PATIENT
  Age: 61 Year
  Sex: Female

DRUGS (1)
  1. ENOXAPARIN SODIUM. [Suspect]
     Active Substance: ENOXAPARIN SODIUM
     Dosage: 100 MG, BID
     Route: 058

REACTIONS (2)
  - Colon cancer stage IV [Unknown]
  - Pulmonary embolism [Unknown]
